FAERS Safety Report 18502648 (Version 1)
Quarter: 2020Q4

REPORT INFORMATION
  Report Type: Report from Study
  Country: US (occurrence: US)
  Receive Date: 20201113
  Receipt Date: 20201113
  Transmission Date: 20210114
  Serious: Yes (Other)
  Sender: FDA-Public Use
  Company Number: US-JNJFOC-20201105344

PATIENT
  Age: 36 Year
  Sex: Female

DRUGS (2)
  1. ESKETAMINE [Suspect]
     Active Substance: ESKETAMINE
     Dosage: 84MG, 7 TOTAL DOSES
     Dates: start: 20201013, end: 20201103
  2. ESKETAMINE [Suspect]
     Active Substance: ESKETAMINE
     Indication: DEPRESSION
     Dosage: 56MG, 11 TOTAL DOSES
     Dates: start: 20191217, end: 20200313

REACTIONS (1)
  - Syncope [Unknown]
